FAERS Safety Report 22915296 (Version 3)
Quarter: 2023Q4

REPORT INFORMATION
  Report Type: Spontaneous
  Country: JP (occurrence: JP)
  Receive Date: 20230907
  Receipt Date: 20231010
  Transmission Date: 20240109
  Serious: Yes (Death, Other)
  Sender: FDA-Public Use
  Company Number: JP-TAIHO-2023-007417

PATIENT
  Age: 71 Year
  Sex: Male
  Weight: 50.3 kg

DRUGS (3)
  1. ABRAXANE [Suspect]
     Active Substance: PACLITAXEL
     Indication: Pancreatic carcinoma metastatic
     Dosage: DOSE NOT REPORTED
     Route: 041
     Dates: start: 20230817, end: 20230817
  2. GEMCITABINE HYDROCHLORIDE [Suspect]
     Active Substance: GEMCITABINE HYDROCHLORIDE
     Indication: Pancreatic carcinoma metastatic
     Dosage: DOSE NOT REPORTED
     Route: 041
     Dates: start: 20230817, end: 20230817
  3. ZOLEDRONIC ACID [Concomitant]
     Active Substance: ZOLEDRONIC ACID
     Indication: Metastases to bone
     Route: 041
     Dates: start: 20230801, end: 20230822

REACTIONS (3)
  - Myelosuppression [Fatal]
  - Malignant neoplasm progression [Fatal]
  - Pneumonia [Fatal]

NARRATIVE: CASE EVENT DATE: 20230821
